FAERS Safety Report 14481917 (Version 1)
Quarter: 2018Q1

REPORT INFORMATION
  Report Type: Report from Study
  Country: BR (occurrence: BR)
  Receive Date: 20180202
  Receipt Date: 20180202
  Transmission Date: 20180509
  Serious: Yes (Hospitalization, Other)
  Sender: FDA-Public Use
  Company Number: PHHY2018BR014056

PATIENT
  Sex: Female

DRUGS (1)
  1. DUOTRAVATAN BF/PQ/APS [Suspect]
     Active Substance: TIMOLOL MALEATE\TRAVOPROST
     Indication: GLAUCOMA
     Dosage: 2.5 ML, UNK
     Route: 065

REACTIONS (4)
  - Malaise [Recovered/Resolved]
  - Glaucoma [Recovering/Resolving]
  - Visual impairment [Recovering/Resolving]
  - Pneumonia [Recovered/Resolved]

NARRATIVE: CASE EVENT DATE: 201704
